FAERS Safety Report 24002403 (Version 1)
Quarter: 2024Q2

REPORT INFORMATION
  Report Type: Spontaneous
  Country: IL (occurrence: IL)
  Receive Date: 20240623
  Receipt Date: 20240623
  Transmission Date: 20240715
  Serious: No
  Sender: FDA-Public Use
  Company Number: IL-JNJFOC-20240576632

PATIENT
  Sex: Female

DRUGS (2)
  1. TREMFYA [Suspect]
     Active Substance: GUSELKUMAB
     Indication: Psoriasis
     Route: 065
     Dates: start: 2022
  2. TREMFYA [Suspect]
     Active Substance: GUSELKUMAB

REACTIONS (4)
  - Needle issue [Unknown]
  - Product leakage [Unknown]
  - Product dose omission issue [Unknown]
  - Psoriasis [Unknown]

NARRATIVE: CASE EVENT DATE: 20240501
